FAERS Safety Report 20020883 (Version 1)
Quarter: 2021Q4

REPORT INFORMATION
  Report Type: Spontaneous
  Country: FR (occurrence: FR)
  Receive Date: 20211101
  Receipt Date: 20211101
  Transmission Date: 20220303
  Serious: Yes (Hospitalization)
  Sender: FDA-Public Use
  Company Number: None

PATIENT
  Age: 28 Year
  Sex: Male

DRUGS (2)
  1. ALPRAZOLAM [Suspect]
     Active Substance: ALPRAZOLAM
     Indication: Product used for unknown indication
     Dosage: 8 X 0,5MG/J
     Route: 048
  2. CANNABIS SATIVA FLOWERING TOP [Suspect]
     Active Substance: CANNABIS SATIVA FLOWERING TOP
     Indication: Product used for unknown indication
     Dosage: EN MOYENNE ENTRE 15 ET 20 JOINTS/J ET JUSQU^??? 25
     Route: 055

REACTIONS (3)
  - Drug dependence [Recovering/Resolving]
  - Abulia [Recovering/Resolving]
  - Cognitive disorder [Recovering/Resolving]
